FAERS Safety Report 20448910 (Version 1)
Quarter: 2022Q1

REPORT INFORMATION
  Report Type: Spontaneous
  Country: US (occurrence: US)
  Receive Date: 20220209
  Receipt Date: 20220209
  Transmission Date: 20220423
  Serious: No
  Sender: FDA-Public Use
  Company Number: US-SA-SAC20220203001715

PATIENT
  Age: 40 Year
  Sex: Female

DRUGS (1)
  1. KEVZARA [Suspect]
     Active Substance: SARILUMAB
     Indication: Arthritis reactive
     Dosage: 200 MG, QOW
     Route: 058
     Dates: start: 202112

REACTIONS (2)
  - Injection site inflammation [Unknown]
  - Injection site pruritus [Unknown]
